FAERS Safety Report 12854285 (Version 1)
Quarter: 2016Q4

REPORT INFORMATION
  Report Type: Spontaneous
  Country: US (occurrence: US)
  Receive Date: 20161017
  Receipt Date: 20161017
  Transmission Date: 20170207
  Serious: No
  Sender: FDA-Public Use
  Company Number: US-PFIZER INC-2016481068

PATIENT
  Sex: Female

DRUGS (2)
  1. LYRICA [Suspect]
     Active Substance: PREGABALIN
     Dosage: UNK UNK, 1X/DAY (75 QD)
  2. LYRICA [Suspect]
     Active Substance: PREGABALIN
     Dosage: UNK (HIGHER DOSE)

REACTIONS (1)
  - Weight increased [Unknown]
